FAERS Safety Report 7653168-8 (Version None)
Quarter: 2011Q3

REPORT INFORMATION
  Report Type: 
  Country: None (occurrence: None)
  Receive Date: 20110803
  Receipt Date: 20110722
  Transmission Date: 20111222
  Serious: No
  Sender: FDA-Public Use
  Company Number: US-B.I. PHARMACEUTICALS,INC./RIDGEFIELD-2011-BP-18361BP

PATIENT
  Sex: Female

DRUGS (12)
  1. GLIPIZIDE [Concomitant]
     Indication: TYPE 2 DIABETES MELLITUS
     Dosage: 20 MG
     Route: 048
  2. METOPROLOL TARTRATE [Concomitant]
     Indication: CARDIAC DISORDER
     Route: 048
  3. CELEBREX [Concomitant]
     Dosage: 200 MG
     Route: 048
  4. SKELEIN [Concomitant]
     Dosage: 1600 MG
     Route: 048
  5. LIVALO [Concomitant]
     Indication: BLOOD CHOLESTEROL
     Dosage: 5 MG
     Route: 048
  6. METFORMIN HCL [Concomitant]
     Indication: TYPE 2 DIABETES MELLITUS
     Dosage: 2000 MG
     Route: 048
  7. PLAVIX [Concomitant]
     Dosage: 75 MG
     Route: 048
  8. XANAX [Concomitant]
     Dosage: 0.75 MG
     Route: 048
  9. ASPIRIN [Concomitant]
     Dosage: 81 MG
     Route: 048
  10. LEVEMIR [Concomitant]
     Indication: TYPE 2 DIABETES MELLITUS
     Dosage: 12 U
     Route: 058
  11. DEMODEX [Concomitant]
     Indication: DIURETIC THERAPY
     Dosage: 20 MG
     Route: 048
  12. TRADJENTA [Suspect]
     Indication: TYPE 2 DIABETES MELLITUS
     Dosage: 5 MG
     Route: 048
     Dates: start: 20110601, end: 20110721

REACTIONS (1)
  - OEDEMA PERIPHERAL [None]
